FAERS Safety Report 8268206-1 (Version None)
Quarter: 2012Q1

REPORT INFORMATION
  Report Type: 
  Country: None (occurrence: None)
  Receive Date: 20120327
  Receipt Date: 20100414
  Transmission Date: 20120608
  Serious: Yes (Other)
  Sender: FDA-Public Use
  Company Number: PHHY2010US23768

PATIENT
  Age: 70 Year
  Sex: Male

DRUGS (9)
  1. GLEEVEC [Suspect]
     Dosage: 400 MG, UNK, 800 MG, UNK
     Dates: start: 20100101
  2. GLEEVEC [Suspect]
     Dosage: 400 MG, UNK, 800 MG, UNK
     Dates: start: 20090701
  3. ACTOS (PIOGLITAZONE, PIOGLITAZONE HYDROCHLORIDE) [Concomitant]
  4. AMBIEN [Concomitant]
  5. PRANDIN (DEFLAZACORT) [Concomitant]
  6. ALLEGRA [Concomitant]
  7. ALPHA LIPOIC ACID (THIOCTIC ACID) [Concomitant]
  8. JANUVIA [Concomitant]
  9. PROTONIX [Concomitant]

REACTIONS (6)
  - FATIGUE [None]
  - NEOPLASM PROGRESSION [None]
  - GASTROINTESTINAL DISORDER [None]
  - LACRIMATION INCREASED [None]
  - EYE SWELLING [None]
  - PROSTATIC SPECIFIC ANTIGEN INCREASED [None]
